FAERS Safety Report 5613991-8 (Version None)
Quarter: 2008Q1

REPORT INFORMATION
  Report Type: 
  Country: None (occurrence: None)
  Receive Date: 20080205
  Receipt Date: 20080128
  Transmission Date: 20080703
  Serious: Yes (Hospitalization)
  Sender: FDA-Public Use
  Company Number: US-GENENTECH-255010

PATIENT
  Sex: Female
  Weight: 63.9 kg

DRUGS (10)
  1. BLINDED BEVACIZUMAB [Suspect]
     Indication: BREAST CANCER
     Dosage: 1101 MG, Q3W
     Route: 042
     Dates: start: 20070625
  2. BLINDED NO STUDY DRUG ADMINISTERED [Suspect]
     Indication: BREAST CANCER
     Dosage: 1101 MG, Q3W
     Route: 042
     Dates: start: 20070625
  3. BLINDED PLACEBO [Suspect]
     Indication: BREAST CANCER
     Dosage: 1101 MG, Q3W
     Route: 042
     Dates: start: 20070625
  4. CAPECITABINE [Concomitant]
     Indication: BREAST CANCER
     Dosage: 1650 MG, BID
     Dates: start: 20070625
  5. LIPITOR [Concomitant]
     Indication: DRUG USE FOR UNKNOWN INDICATION
     Dosage: 10 MG, QD
  6. FUROSEMIDE [Concomitant]
     Indication: DRUG USE FOR UNKNOWN INDICATION
     Dosage: 20 MG, QD
  7. BENICAR [Concomitant]
     Indication: DRUG USE FOR UNKNOWN INDICATION
     Dosage: UNK, QD
  8. POTASSIUM CHLORIDE [Concomitant]
     Indication: DRUG USE FOR UNKNOWN INDICATION
  9. METFORMIN HCL [Concomitant]
     Indication: DRUG USE FOR UNKNOWN INDICATION
  10. LANTUS [Concomitant]
     Indication: DRUG USE FOR UNKNOWN INDICATION

REACTIONS (1)
  - CONVULSION [None]
